FAERS Safety Report 5483818-6 (Version None)
Quarter: 2007Q4

REPORT INFORMATION
  Report Type: 
  Country: None (occurrence: None)
  Receive Date: 20071012
  Receipt Date: 20071010
  Transmission Date: 20080405
  Serious: Yes (Hospitalization)
  Sender: FDA-Public Use
  Company Number: B0490890A

PATIENT
  Age: 17 Year
  Sex: Female

DRUGS (1)
  1. ZYBAN [Suspect]
     Indication: SUICIDE ATTEMPT
     Dosage: 20TAB PER DAY
     Dates: start: 20071008, end: 20071008

REACTIONS (3)
  - EPILEPSY [None]
  - OVERDOSE [None]
  - SUICIDE ATTEMPT [None]
